FAERS Safety Report 12302076 (Version 1)
Quarter: 2016Q2

REPORT INFORMATION
  Report Type: Spontaneous
  Country: US (occurrence: US)
  Receive Date: 20160425
  Receipt Date: 20160425
  Transmission Date: 20160815
  Serious: Yes (Other)
  Sender: FDA-Public Use
  Company Number: US-MYLANLABS-2016M1016132

PATIENT

DRUGS (3)
  1. EXTENDED PHENYTOIN SODIUM [Suspect]
     Active Substance: PHENYTOIN SODIUM
     Indication: SEIZURE
     Dosage: 400 MG, QHS (7 PM)
     Route: 048
     Dates: start: 20160217
  2. FLOMAX [Concomitant]
     Active Substance: TAMSULOSIN HYDROCHLORIDE
     Indication: PROSTATIC DISORDER
     Dosage: UNK, QHS
  3. PROSCAR [Concomitant]
     Active Substance: FINASTERIDE
     Indication: PROSTATIC DISORDER
     Dosage: UNK, QHS

REACTIONS (2)
  - Drug effect decreased [Unknown]
  - Anticonvulsant drug level below therapeutic [Unknown]

NARRATIVE: CASE EVENT DATE: 2016
